FAERS Safety Report 22743796 (Version 2)
Quarter: 2024Q1

REPORT INFORMATION
  Report Type: Other
  Country: FR (occurrence: FR)
  Receive Date: 20230724
  Receipt Date: 20240326
  Transmission Date: 20240409
  Serious: Yes (Death)
  Sender: FDA-Public Use
  Company Number: FR-PIERREL S.P.A.-2023PIR00037

PATIENT
  Age: 68 Year
  Sex: Female
  Weight: 46 kg

DRUGS (1)
  1. ORABLOC [Suspect]
     Active Substance: ARTICAINE HYDROCHLORIDE\EPINEPHRINE BITARTRATE
     Indication: Local anaesthesia
     Dosage: 5 ML
     Dates: start: 20230703, end: 20230703

REACTIONS (1)
  - Cardio-respiratory arrest [Fatal]

NARRATIVE: CASE EVENT DATE: 20230703
